FAERS Safety Report 5551436-7 (Version None)
Quarter: 2007Q4

REPORT INFORMATION
  Report Type: 
  Country: None (occurrence: None)
  Receive Date: 20071128
  Receipt Date: 20070416
  Transmission Date: 20080405
  Serious: No
  Sender: FDA-Public Use
  Company Number: 2007030798

PATIENT
  Sex: Female

DRUGS (1)
  1. LIPITOR [Suspect]
     Dosage: 10 MEQ (10 MG, 1 IN 1 D)

REACTIONS (2)
  - PAIN IN EXTREMITY [None]
  - WRONG TECHNIQUE IN DRUG USAGE PROCESS [None]
